FAERS Safety Report 4318602-X (Version None)
Quarter: 2004Q1

REPORT INFORMATION
  Report Type: 
  Country: None (occurrence: None)
  Receive Date: 20040315
  Receipt Date: 20040308
  Transmission Date: 20041129
  Serious: Yes (Hospitalization)
  Sender: FDA-Public Use
  Company Number: 200410737GDS

PATIENT
  Age: 34 Year
  Sex: Male

DRUGS (3)
  1. ASPIRIN [Suspect]
     Indication: INFLUENZA
     Dosage: ORAL
     Route: 048
     Dates: start: 20031115, end: 20031123
  2. ACETAMINOPHEN [Suspect]
     Indication: INFLUENZA
     Dosage: ORAL
     Route: 048
     Dates: start: 20031115, end: 20031123
  3. IBUPROFEN [Suspect]
     Dosage: 1.8 G, TOTAL DAILY, ORAL
     Route: 048
     Dates: end: 20031120

REACTIONS (4)
  - ABDOMINAL PAIN [None]
  - ANOREXIA [None]
  - RENAL FAILURE ACUTE [None]
  - VOMITING [None]
